FAERS Safety Report 7961810-7 (Version None)
Quarter: 2011Q4

REPORT INFORMATION
  Report Type: 
  Country: None (occurrence: None)
  Receive Date: 20111207
  Receipt Date: 20111128
  Transmission Date: 20120403
  Serious: Yes (Other)
  Sender: FDA-Public Use
  Company Number: ES-EISAI INC-E7389-01779-SPO-ES

PATIENT
  Age: 70 Year
  Sex: Female

DRUGS (1)
  1. HALAVEN [Suspect]
     Route: 041
     Dates: start: 20111121

REACTIONS (1)
  - CEREBROVASCULAR ACCIDENT [None]
